FAERS Safety Report 5403198-1 (Version None)
Quarter: 2007Q3

REPORT INFORMATION
  Report Type: 
  Country: None (occurrence: None)
  Receive Date: 20070801
  Receipt Date: 20070725
  Transmission Date: 20080115
  Serious: Yes (Hospitalization)
  Sender: FDA-Public Use
  Company Number: FR-PFIZER INC-2007061262

PATIENT
  Sex: Female

DRUGS (6)
  1. SOLU-MEDROL [Suspect]
     Indication: PREMEDICATION
     Route: 042
  2. IFOSFAMIDE [Suspect]
     Indication: EWING'S SARCOMA
     Dosage: DAILY DOSE:4532MG
     Dates: start: 20070524, end: 20070525
  3. VINCRISTINE SULFATE [Suspect]
     Indication: EWING'S SARCOMA
     Dosage: DAILY DOSE:2MG
     Dates: start: 20070524, end: 20070524
  4. DOXORUBICIN HCL [Suspect]
     Indication: EWING'S SARCOMA
     Dosage: DAILY DOSE:90.6MG
  5. DEXRAZOXANE [Suspect]
     Indication: PREMEDICATION
     Dosage: DAILY DOSE:1812MG
  6. ONDANSETRON [Concomitant]

REACTIONS (3)
  - ENCEPHALOPATHY [None]
  - HYPONATRAEMIA [None]
  - SOMNOLENCE [None]
